FAERS Safety Report 8969429 (Version 2)
Quarter: 2013Q1

REPORT INFORMATION
  Report Type: Spontaneous
  Country: JP (occurrence: JP)
  Receive Date: 20121218
  Receipt Date: 20130212
  Transmission Date: 20140127
  Serious: Yes (Other)
  Sender: FDA-Public Use
  Company Number: JP-AMGEN-JPNSP2012071667

PATIENT
  Age: 75 Year
  Sex: Female

DRUGS (14)
  1. ENBREL [Suspect]
     Indication: RHEUMATOID ARTHRITIS
     Dosage: 50 MG, UNK
     Route: 058
     Dates: end: 20121027
  2. NAUZELIN [Concomitant]
     Dosage: 10 MG, 3X/DAY
  3. DEPAS [Concomitant]
     Dosage: 0.5 MG, 3X/DAY
  4. GLACTIV [Concomitant]
     Dosage: 50 MG, 1X/DAY
  5. NEXIUM                             /01479302/ [Concomitant]
     Dosage: 20 MG, 1X/DAY
  6. DIOVAN [Concomitant]
     Dosage: 80 MG, 1X/DAY
  7. AMLODIPINE [Concomitant]
     Dosage: 5 MG, 1X/DAY
  8. VOLTAREN                           /00372301/ [Concomitant]
     Dosage: 25 MG, AS NEEDED
  9. DUROTEP [Concomitant]
     Dosage: UNK
     Route: 062
  10. REBAMIPIDE [Concomitant]
     Dosage: 100 MG, 3X/DAY
  11. STAYBLA [Concomitant]
     Dosage: 0.1 MG, 1X/DAY
  12. LENDORMIN [Concomitant]
     Dosage: 0.25 MG, 1X/DAY
  13. ELCITONIN [Concomitant]
     Dosage: UNK
     Route: 030
  14. ARTZ [Concomitant]
     Dosage: 25 MG, UNK
     Route: 014

REACTIONS (2)
  - Emphysema [Unknown]
  - Cell marker increased [Not Recovered/Not Resolved]
